FAERS Safety Report 5638528-9 (Version None)
Quarter: 2008Q1

REPORT INFORMATION
  Report Type: 
  Country: None (occurrence: None)
  Receive Date: 20080226
  Receipt Date: 20070316
  Transmission Date: 20080703
  Serious: No
  Sender: FDA-Public Use
  Company Number: A0644000A

PATIENT
  Sex: Female

DRUGS (1)
  1. IMITREX [Suspect]
     Dosage: 100MG UNKNOWN
     Route: 065

REACTIONS (2)
  - THERAPEUTIC RESPONSE DECREASED [None]
  - THERAPEUTIC RESPONSE UNEXPECTED [None]
